FAERS Safety Report 7637165-4 (Version None)
Quarter: 2011Q3

REPORT INFORMATION
  Report Type: 
  Country: None (occurrence: None)
  Receive Date: 20110726
  Receipt Date: 20110718
  Transmission Date: 20111222
  Serious: Yes (Hospitalization)
  Sender: FDA-Public Use
  Company Number: BR-MEDIMMUNE-MEDI-0013346

PATIENT
  Sex: Female
  Weight: 5.65 kg

DRUGS (2)
  1. SYNAGIS [Suspect]
  2. SYNAGIS [Suspect]
     Indication: BRONCHOPULMONARY DYSPLASIA
     Route: 030
     Dates: start: 20110512, end: 20110512

REACTIONS (7)
  - PYREXIA [None]
  - COUGH [None]
  - INCREASED BRONCHIAL SECRETION [None]
  - DYSPNOEA [None]
  - PNEUMONIA BACTERIAL [None]
  - BRONCHIOLITIS [None]
  - VISUAL ACUITY REDUCED [None]
